FAERS Safety Report 23688330 (Version 1)
Quarter: 2024Q1

REPORT INFORMATION
  Report Type: Spontaneous
  Country: CH (occurrence: CH)
  Receive Date: 20240329
  Receipt Date: 20240329
  Transmission Date: 20240410
  Serious: Yes (Hospitalization, Other)
  Sender: FDA-Public Use
  Company Number: None

PATIENT
  Age: 69 Year
  Sex: Female

DRUGS (28)
  1. EMEND [Suspect]
     Active Substance: APREPITANT
     Indication: Chemotherapy
     Dosage: 125 MILLIGRAM
     Route: 048
     Dates: start: 20240227, end: 20240227
  2. EMEND [Suspect]
     Active Substance: APREPITANT
     Dosage: 80 MILLIGRAM
     Route: 048
     Dates: start: 20240228, end: 20240228
  3. EMEND [Suspect]
     Active Substance: APREPITANT
     Dosage: 80 MILLIGRAM
     Route: 048
     Dates: start: 20240229, end: 20240229
  4. EMEND [Suspect]
     Active Substance: APREPITANT
     Dosage: 125 MILLIGRAM
     Route: 048
     Dates: start: 20240308, end: 20240308
  5. EMEND [Suspect]
     Active Substance: APREPITANT
     Dosage: 80 MILLIGRAM
     Route: 048
     Dates: start: 20240309, end: 20240309
  6. EMEND [Suspect]
     Active Substance: APREPITANT
     Dosage: 80 MILLIGRAM
     Route: 048
     Dates: start: 20240310, end: 20240310
  7. VINORELBINE TARTRATE [Suspect]
     Active Substance: VINORELBINE TARTRATE
     Indication: Lung squamous cell carcinoma stage II
     Dosage: 1. CYCLE ; CYCLICAL
     Route: 041
     Dates: start: 20240227, end: 20240227
  8. VINORELBINE TARTRATE [Suspect]
     Active Substance: VINORELBINE TARTRATE
     Dosage: 2ND CYCLE, (INSTEAD OF PLANNED ADMINISTRATION ON 05.03.2024)(A TOTAL OF 4 CYCLES OF 3 W EACH ARE PLA
     Route: 041
     Dates: start: 20240308, end: 20240308
  9. PALONOSETRON [Suspect]
     Active Substance: PALONOSETRON
     Indication: Chemotherapy
     Dosage: 0.25 MILLIGRAM
     Route: 041
     Dates: start: 20240227, end: 20240228
  10. PALONOSETRON [Suspect]
     Active Substance: PALONOSETRON
     Dosage: 0.25 MILLIGRAM
     Route: 041
     Dates: start: 20240308, end: 20240308
  11. DARIFENACIN HYDROBROMIDE [Suspect]
     Active Substance: DARIFENACIN HYDROBROMIDE
     Indication: Hypertonic bladder
     Dosage: 0-0-1-0, SINCE AT LEAST 10.11.2023
     Route: 048
     Dates: start: 20231110
  12. CISPLATIN [Concomitant]
     Active Substance: CISPLATIN
     Indication: Squamous cell carcinoma
     Dosage: 1. CYCLE ; CYCLICAL
     Route: 041
     Dates: start: 20240227, end: 20240227
  13. CISPLATIN [Concomitant]
     Active Substance: CISPLATIN
     Dosage: 2ND CYCLE, (INSTEAD OF PLANNED ADMINISTRATION ON 05.03.2024)(A TOTAL OF 4 CYCLES OF 3 W EACH ARE PLA
     Route: 041
     Dates: start: 20240308, end: 20240308
  14. DEXAMETHASONE [Concomitant]
     Active Substance: DEXAMETHASONE
     Indication: Squamous cell carcinoma
     Dosage: 12 MILLIGRAM
     Route: 048
     Dates: start: 20240227, end: 20240227
  15. DEXAMETHASONE [Concomitant]
     Active Substance: DEXAMETHASONE
     Dosage: 12 MILLIGRAM
     Route: 048
     Dates: start: 20240308, end: 20240308
  16. DEXAMETHASONE [Concomitant]
     Active Substance: DEXAMETHASONE
     Dosage: 8 MILLIGRAM
     Route: 048
     Dates: start: 20240228, end: 20240229
  17. DEXAMETHASONE [Concomitant]
     Active Substance: DEXAMETHASONE
     Dosage: 8 MILLIGRAM
     Route: 048
     Dates: start: 20240301, end: 20240301
  18. DEXAMETHASONE [Concomitant]
     Active Substance: DEXAMETHASONE
     Dosage: 8 MILLIGRAM
     Route: 048
     Dates: start: 20240309, end: 20240310
  19. ZYPREXA [Concomitant]
     Active Substance: OLANZAPINE
     Indication: Squamous cell carcinoma
     Dosage: 5 MILLIGRAM
     Route: 048
     Dates: start: 20240227, end: 20240229
  20. ZYPREXA [Concomitant]
     Active Substance: OLANZAPINE
     Dosage: 5 MILLIGRAM
     Route: 048
     Dates: start: 20240308, end: 20240310
  21. METFORMIN HYDROCHLORIDE [Concomitant]
     Active Substance: METFORMIN HYDROCHLORIDE
     Dosage: 0-0-1-0
     Route: 048
  22. PERINDOPRIL [Concomitant]
     Active Substance: PERINDOPRIL
     Dosage: 1-0-0-0
     Route: 048
  23. ATORVASTATIN\EZETIMIBE [Concomitant]
     Active Substance: ATORVASTATIN\EZETIMIBE
     Dosage: 1-0-0-0
     Route: 048
  24. PREGABALIN [Concomitant]
     Active Substance: PREGABALIN
     Dosage: 0-0-0-1
     Route: 048
  25. DAFALGAN [Concomitant]
     Active Substance: ACETAMINOPHEN
     Dosage: 1-1-1-1
     Route: 048
  26. NOVALGIN (METAMIZOLE SODIUM) [Concomitant]
     Active Substance: METAMIZOLE SODIUM
     Dosage: 2-2-2-2
     Route: 048
  27. OLODATEROL HYDROCHLORIDE\TIOTROPIUM BROMIDE MONOHYDRATE [Concomitant]
     Active Substance: OLODATEROL HYDROCHLORIDE\TIOTROPIUM BROMIDE MONOHYDRATE
     Dosage: 2.5MCG/STROKE, 0-0-1-0
  28. CALCIUM CARBONATE\CHOLECALCIFEROL [Concomitant]
     Active Substance: CALCIUM CARBONATE\CHOLECALCIFEROL
     Dosage: 500MG/800 E

REACTIONS (1)
  - Faecaloma [Recovered/Resolved]

NARRATIVE: CASE EVENT DATE: 20240306
